FAERS Safety Report 17488788 (Version 2)
Quarter: 2020Q1

REPORT INFORMATION
  Report Type: Spontaneous
  Country: TR (occurrence: TR)
  Receive Date: 20200303
  Receipt Date: 20200306
  Transmission Date: 20200409
  Serious: No
  Sender: FDA-Public Use
  Company Number: TR-JNJFOC-20200243028

PATIENT
  Age: 48 Year
  Sex: Female
  Weight: 38.1 kg

DRUGS (4)
  1. RIVAROXABAN [Suspect]
     Active Substance: RIVAROXABAN
     Indication: PULMONARY EMBOLISM
  2. DIOVAN [Concomitant]
     Active Substance: VALSARTAN
     Dosage: 160 MG, QD
  3. RIVAROXABAN [Suspect]
     Active Substance: RIVAROXABAN
     Indication: DEEP VEIN THROMBOSIS
     Dosage: 15 MG, QD
     Route: 048
     Dates: start: 20200221
  4. LANSOR [Concomitant]
     Active Substance: LANSOPRAZOLE
     Indication: DUODENAL ULCER
     Dosage: UNK

REACTIONS (6)
  - Biopsy uterus [Unknown]
  - Hypoaesthesia [Recovered/Resolved]
  - Cold sweat [Recovered/Resolved]
  - Blood pressure decreased [Recovered/Resolved]
  - Off label use [Unknown]
  - Abdominal distension [Recovered/Resolved]

NARRATIVE: CASE EVENT DATE: 20200221
